FAERS Safety Report 15674795 (Version 1)
Quarter: 2018Q4

REPORT INFORMATION
  Report Type: Spontaneous
  Country: ES (occurrence: ES)
  Receive Date: 20181130
  Receipt Date: 20181130
  Transmission Date: 20190205
  Serious: Yes (Hospitalization)
  Sender: FDA-Public Use
  Company Number: ES-ACCORD-094275

PATIENT
  Age: 63 Year
  Sex: Female
  Weight: 65 kg

DRUGS (1)
  1. CISPLATIN ACCORD [Suspect]
     Active Substance: CISPLATIN
     Indication: LUNG NEOPLASM MALIGNANT
     Route: 042
     Dates: start: 20171113, end: 20171113

REACTIONS (3)
  - Asthenia [Recovered/Resolved]
  - Mucosal inflammation [Recovered/Resolved]
  - Odynophagia [Recovered/Resolved]

NARRATIVE: CASE EVENT DATE: 20171120
